FAERS Safety Report 10076821 (Version 1)
Quarter: 2014Q2

REPORT INFORMATION
  Report Type: Spontaneous
  Country: US (occurrence: US)
  Receive Date: 20140414
  Receipt Date: 20140414
  Transmission Date: 20141212
  Serious: Yes (Other)
  Sender: FDA-Public Use
  Company Number: US-SA-2014SA043436

PATIENT
  Sex: Male

DRUGS (1)
  1. PLAVIX [Suspect]
     Indication: VASCULAR GRAFT
     Route: 048

REACTIONS (3)
  - Oesophageal carcinoma [Unknown]
  - Ulcer haemorrhage [Unknown]
  - Hypoacusis [Unknown]
